FAERS Safety Report 8573738 (Version 4)
Quarter: 2013Q2

REPORT INFORMATION
  Report Type: Spontaneous
  Country: US (occurrence: US)
  Receive Date: 20120522
  Receipt Date: 20130605
  Transmission Date: 20140414
  Serious: No
  Sender: FDA-Public Use
  Company Number: US-ASTRAZENECA-2012SE27617

PATIENT
  Age: 57 Year
  Sex: Female
  Weight: 91.6 kg

DRUGS (7)
  1. NEXIUM [Suspect]
     Indication: GASTROOESOPHAGEAL REFLUX DISEASE
     Route: 048
  2. NEXIUM [Suspect]
     Indication: GASTRITIS
     Route: 048
  3. LISINOPRIL [Suspect]
     Indication: BLOOD PRESSURE
     Route: 048
  4. PRILOSEC [Suspect]
     Route: 048
  5. SEROQUEL [Suspect]
     Indication: SLEEP DISORDER
     Route: 048
  6. ZETIA [Concomitant]
     Indication: BLOOD CHOLESTEROL ABNORMAL
  7. LEVOTHYROXINE [Concomitant]
     Indication: THYROID DISORDER

REACTIONS (14)
  - Laryngitis [Unknown]
  - Chest pain [Unknown]
  - Back pain [Unknown]
  - Hyperchlorhydria [Unknown]
  - Dyspepsia [Unknown]
  - Hypertension [Unknown]
  - Gastrooesophageal reflux disease [Unknown]
  - Fatigue [Unknown]
  - Malaise [Unknown]
  - Dizziness [Unknown]
  - Vomiting [Unknown]
  - Drug ineffective [None]
  - Drug dose omission [Unknown]
  - Intentional drug misuse [Unknown]
